FAERS Safety Report 21689510 (Version 1)
Quarter: 2022Q4

REPORT INFORMATION
  Report Type: Spontaneous
  Country: US (occurrence: None)
  Receive Date: 20221205
  Receipt Date: 20221205
  Transmission Date: 20230113
  Serious: No
  Sender: FDA-Public Use
  Company Number: None

PATIENT
  Sex: Male

DRUGS (1)
  1. LENALIDOMIDE [Suspect]
     Active Substance: LENALIDOMIDE
     Indication: Plasma cell myeloma
     Dosage: 25MG ONCE DAILY BY MOUTH?
     Route: 048
     Dates: start: 202203

REACTIONS (5)
  - Therapy interrupted [None]
  - Blood urine present [None]
  - Skin laceration [None]
  - Fall [None]
  - Anaemia [None]
